FAERS Safety Report 25485381 (Version 1)
Quarter: 2025Q2

REPORT INFORMATION
  Report Type: Report from Study
  Country: US (occurrence: US)
  Receive Date: 20250626
  Receipt Date: 20250626
  Transmission Date: 20250716
  Serious: Yes (Other)
  Sender: ABBVIE
  Company Number: US-ABBVIE-6341691

PATIENT
  Age: 52 Year
  Sex: Female

DRUGS (1)
  1. RINVOQ [Suspect]
     Active Substance: UPADACITINIB
     Indication: Rheumatoid arthritis
     Route: 048
     Dates: start: 20230613

REACTIONS (5)
  - Metabolic surgery [Unknown]
  - Arthralgia [Unknown]
  - Memory impairment [Unknown]
  - Musculoskeletal discomfort [Unknown]
  - Brain fog [Unknown]

NARRATIVE: CASE EVENT DATE: 20231218
